FAERS Safety Report 6241811-X (Version None)
Quarter: 2009Q2

REPORT INFORMATION
  Report Type: 
  Country: None (occurrence: None)
  Receive Date: 20090623
  Receipt Date: 20090611
  Transmission Date: 20091009
  Serious: Yes (Hospitalization)
  Sender: FDA-Public Use
  Company Number: JP-AMGEN-US332908

PATIENT
  Sex: Female
  Weight: 47 kg

DRUGS (6)
  1. ENBREL [Suspect]
     Indication: RHEUMATOID ARTHRITIS
     Route: 058
     Dates: start: 20070411, end: 20080815
  2. METHOTREXATE [Suspect]
     Indication: RHEUMATOID ARTHRITIS
     Route: 048
     Dates: start: 20070608
  3. RHEUMATREX [Suspect]
     Indication: RHEUMATOID ARTHRITIS
     Route: 048
     Dates: start: 20060203
  4. BENET [Concomitant]
     Indication: OSTEOPOROSIS
     Route: 048
     Dates: start: 20070817, end: 20081202
  5. FOLIAMIN [Concomitant]
     Route: 048
     Dates: start: 20060908
  6. THEOLONG [Concomitant]
     Indication: ASTHMA
     Dosage: UNKNOWN
     Route: 048

REACTIONS (3)
  - BRONCHITIS [None]
  - MORAXELLA INFECTION [None]
  - PNEUMOCYSTIS JIROVECI PNEUMONIA [None]
